FAERS Safety Report 4485919-8 (Version None)
Quarter: 2004Q4

REPORT INFORMATION
  Report Type: 
  Country: None (occurrence: None)
  Receive Date: 20041021
  Receipt Date: 20041005
  Transmission Date: 20050328
  Serious: No
  Sender: FDA-Public Use
  Company Number: CART-10163

PATIENT
  Age: 28 Year
  Sex: Female

DRUGS (1)
  1. CARTICEL [Suspect]
     Indication: ARTHROPATHY
     Dosage: 1 NA ONCE IS
     Dates: start: 20000321, end: 20000321

REACTIONS (5)
  - ARTHROFIBROSIS [None]
  - GRAFT COMPLICATION [None]
  - MENISCUS LESION [None]
  - SCAR [None]
  - SYNOVITIS [None]
